FAERS Safety Report 12186848 (Version 3)
Quarter: 2016Q2

REPORT INFORMATION
  Report Type: Spontaneous
  Country: US (occurrence: US)
  Receive Date: 20160317
  Receipt Date: 20160519
  Transmission Date: 20160815
  Serious: No
  Sender: FDA-Public Use
  Company Number: US-PFIZER INC-2016156311

PATIENT
  Sex: Female

DRUGS (1)
  1. GENOTROPIN MQ [Suspect]
     Active Substance: SOMATROPIN
     Dosage: 0.4 MG, UNK

REACTIONS (7)
  - Pain in extremity [Unknown]
  - Hyperhidrosis [Unknown]
  - Paraesthesia [Unknown]
  - Myalgia [Unknown]
  - Muscle spasms [Unknown]
  - Visual impairment [Unknown]
  - Hypoaesthesia [Unknown]
